FAERS Safety Report 18272847 (Version 1)
Quarter: 2020Q3

REPORT INFORMATION
  Report Type: Spontaneous
  Country: US (occurrence: US)
  Receive Date: 20200916
  Receipt Date: 20200916
  Transmission Date: 20201103
  Serious: Yes (Other)
  Sender: FDA-Public Use
  Company Number: None

PATIENT
  Age: 18 Year
  Sex: Female
  Weight: 87 kg

DRUGS (11)
  1. FAMOTIDINE 20 MG PO BID [Concomitant]
     Dates: start: 20200912
  2. PRENATAL VITAMIN 1 PO DAILY [Concomitant]
     Dates: start: 20200912
  3. CHOLECALCIFEROL 2000 UNITS PO DAILY [Concomitant]
     Dates: start: 20200913
  4. ZINC SULFATE 220 MG PO BID [Concomitant]
     Dates: start: 20200913
  5. ASPIRIN 81 MG PO DAILY [Concomitant]
     Dates: start: 20200912
  6. ASCORBIC ACID 500 MG PO TID [Concomitant]
     Dates: start: 20200912
  7. DOCUSATE 100 MG PO DAILY [Concomitant]
     Dates: start: 20200913
  8. REMDESIVIR. [Suspect]
     Active Substance: REMDESIVIR
     Indication: COVID-19
     Route: 040
     Dates: start: 20200913, end: 20200916
  9. ENOXAPARIN 40 MG SC DAILY [Concomitant]
     Dates: start: 20200913
  10. METHYLPREDNISOLONE 40 MG IV Q6H [Concomitant]
     Dates: start: 20200912
  11. AMOXICILLIN 500 MG PO Q8H [Concomitant]
     Dates: start: 20200914

REACTIONS (2)
  - Alanine aminotransferase increased [None]
  - Therapy cessation [None]
